FAERS Safety Report 12089979 (Version 1)
Quarter: 2016Q1

REPORT INFORMATION
  Report Type: Spontaneous
  Country: HR (occurrence: HR)
  Receive Date: 20160218
  Receipt Date: 20160218
  Transmission Date: 20160526
  Serious: Yes (Other)
  Sender: FDA-Public Use
  Company Number: PHHY2016HR019387

PATIENT
  Age: 64 Year
  Sex: Female

DRUGS (1)
  1. ONBREZ BREEZHALER [Suspect]
     Active Substance: INDACATEROL
     Indication: CHRONIC OBSTRUCTIVE PULMONARY DISEASE
     Dosage: 150 UG, UNK
     Route: 055
     Dates: start: 20151118

REACTIONS (15)
  - Eyelid oedema [Unknown]
  - Dizziness [Unknown]
  - Oedema peripheral [Unknown]
  - Polyneuropathy [Unknown]
  - Bone pain [Unknown]
  - Lacrimation increased [Unknown]
  - Headache [Unknown]
  - Muscle spasms [Unknown]
  - Eye irritation [Unknown]
  - Sinusitis [Unknown]
  - Rhinorrhoea [Unknown]
  - Myalgia [Unknown]
  - Arthralgia [Unknown]
  - Hypoaesthesia [Unknown]
  - Cough [Unknown]

NARRATIVE: CASE EVENT DATE: 201511
